FAERS Safety Report 9148841 (Version 1)
Quarter: 2013Q1

REPORT INFORMATION
  Report Type: Spontaneous
  Country: IT (occurrence: IT)
  Receive Date: 20130308
  Receipt Date: 20130308
  Transmission Date: 20140127
  Serious: Yes (Hospitalization)
  Sender: FDA-Public Use
  Company Number: IT-MYLANLABS-2013S1004439

PATIENT
  Age: 80 Year
  Sex: Male
  Weight: 70 kg

DRUGS (8)
  1. OMEPRAZOLE [Suspect]
     Indication: PROPHYLAXIS AGAINST GASTROINTESTINAL ULCER
     Route: 048
     Dates: start: 20080101
  2. TORVAST [Suspect]
     Indication: DYSLIPIDAEMIA
     Route: 048
     Dates: start: 20080101
  3. NORVASC [Concomitant]
     Indication: ESSENTIAL HYPERTENSION
  4. ENAPREN [Concomitant]
     Indication: ESSENTIAL HYPERTENSION
  5. CARDIOASPIRIN [Concomitant]
     Indication: PERIPHERAL ARTERIAL OCCLUSIVE DISEASE
  6. AMARYL [Concomitant]
     Indication: DIABETES MELLITUS
     Dates: start: 20080101
  7. AVODART [Concomitant]
     Indication: BENIGN PROSTATIC HYPERPLASIA
     Dates: start: 20080101
  8. XATRAL [Concomitant]
     Indication: BENIGN PROSTATIC HYPERPLASIA
     Dates: start: 20080101

REACTIONS (6)
  - Hypocalcaemia [Recovered/Resolved]
  - Hypokalaemia [Recovered/Resolved]
  - Hypomagnesaemia [Recovered/Resolved]
  - Rhabdomyolysis [Recovered/Resolved]
  - Tetany [Recovered/Resolved]
  - Hypoparathyroidism [Recovered/Resolved]
